FAERS Safety Report 5159209-4 (Version None)
Quarter: 2006Q4

REPORT INFORMATION
  Report Type: 
  Country: None (occurrence: None)
  Receive Date: 20061120
  Receipt Date: 20061113
  Transmission Date: 20070319
  Serious: Yes (Hospitalization)
  Sender: FDA-Public Use
  Company Number: 2006SP003366

PATIENT
  Age: 42 Year
  Sex: Male

DRUGS (3)
  1. PEGETRON                   (PEGINTERFERON ALFA-2B W/RIBAVIRIN) [Suspect]
     Indication: HEPATITIS C
     Dosage: SEE IMAGE
     Dates: start: 20060701, end: 20060927
  2. PEGETRON                   (PEGINTERFERON ALFA-2B W/RIBAVIRIN) [Suspect]
     Indication: HEPATITIS C
     Dosage: SEE IMAGE
     Dates: start: 20060701, end: 20060927
  3. ANTI-DEPRESSANT [Concomitant]

REACTIONS (3)
  - ANTI-PLATELET ANTIBODY POSITIVE [None]
  - MUSCULOSKELETAL DISCOMFORT [None]
  - PULMONARY EMBOLISM [None]
